FAERS Safety Report 9687612 (Version 2)
Quarter: 2013Q4

REPORT INFORMATION
  Report Type: Spontaneous
  Country: IT (occurrence: IT)
  Receive Date: 20131114
  Receipt Date: 20131202
  Transmission Date: 20140711
  Serious: Yes (Other)
  Sender: FDA-Public Use
  Company Number: IT-ACCORD-020290

PATIENT
  Age: 50 Year
  Sex: Female

DRUGS (1)
  1. TOPIRAMATE [Suspect]
     Indication: HEADACHE
     Dates: start: 201001

REACTIONS (2)
  - Granuloma annulare [Recovered/Resolved]
  - Weight decreased [Unknown]
